FAERS Safety Report 5034559-0 (Version None)
Quarter: 2006Q2

REPORT INFORMATION
  Report Type: 
  Country: None (occurrence: None)
  Receive Date: 20060621
  Receipt Date: 20060601
  Transmission Date: 20061013
  Serious: Yes (Other)
  Sender: FDA-Public Use
  Company Number: TPA2006A00835

PATIENT
  Age: 75 Year
  Sex: Female
  Weight: 54.4316 kg

DRUGS (5)
  1. ACTOPLUS MET [Suspect]
     Indication: DIABETES MELLITUS NON-INSULIN-DEPENDENT
     Dosage: 15/500 MG, 2 IN 1 D, PER ORAL
     Route: 048
     Dates: start: 20060101
  2. GLYBURIDE [Suspect]
     Indication: DIABETES MELLITUS
     Dosage: 8 MG, 2 IN 1 D, PER ORAL
     Route: 048
  3. HCTZ (HYDROCHLOROTHIAZIDE) [Concomitant]
  4. PRAVACHOL (PRAVASTATIN SODIUM) (20 MILLIGRAM) [Concomitant]
  5. EVISTA (RALOXIFENE HYDROCHLORIDE) (TABLETS) [Concomitant]

REACTIONS (7)
  - BLOOD GLUCOSE DECREASED [None]
  - DRUG DISPENSING ERROR [None]
  - FEELING HOT [None]
  - LOSS OF CONSCIOUSNESS [None]
  - MALAISE [None]
  - PHARMACEUTICAL PRODUCT COMPLAINT [None]
  - THANATOPHOBIA [None]
